FAERS Safety Report 7617623-9 (Version None)
Quarter: 2011Q3

REPORT INFORMATION
  Report Type: 
  Country: None (occurrence: None)
  Receive Date: 20110718
  Receipt Date: 20110708
  Transmission Date: 20111222
  Serious: Yes (Hospitalization)
  Sender: FDA-Public Use
  Company Number: DE-TEVA-289906GER

PATIENT
  Age: 62 Year
  Sex: Female

DRUGS (25)
  1. CLOZAPINE [Suspect]
     Dosage: 250-400 MG
     Route: 048
     Dates: start: 20110405
  2. HALDOL [Suspect]
     Route: 048
     Dates: start: 20110323
  3. HALDOL [Suspect]
     Route: 048
     Dates: start: 20110324, end: 20110325
  4. DIAZEPAM [Concomitant]
     Route: 048
     Dates: start: 20110329, end: 20110330
  5. CLOZAPINE [Suspect]
     Route: 048
     Dates: start: 20110328
  6. CLOZAPINE [Suspect]
     Route: 048
     Dates: start: 20110330, end: 20110331
  7. HALDOL [Suspect]
     Route: 048
     Dates: start: 20110321, end: 20110322
  8. LEVOTHYROXINE SODIUM [Concomitant]
     Route: 048
  9. SIMVASTATIN [Concomitant]
     Route: 048
  10. HALDOL [Suspect]
     Route: 048
     Dates: start: 20110328
  11. DIAZEPAM [Concomitant]
     Route: 048
     Dates: start: 20110401
  12. AKINETON [Concomitant]
     Route: 048
  13. JODID [Concomitant]
     Route: 048
  14. CLOZAPINE [Suspect]
     Route: 048
     Dates: start: 20090901, end: 20110323
  15. CLOZAPINE [Suspect]
     Route: 048
     Dates: start: 20110325, end: 20110327
  16. LAMOTRIGINE [Concomitant]
     Route: 048
  17. CLOZAPINE [Suspect]
     Route: 048
     Dates: start: 20110329
  18. CLOZAPINE [Suspect]
     Route: 048
     Dates: start: 20110401, end: 20110411
  19. HALDOL [Suspect]
     Route: 048
     Dates: start: 20110329
  20. HALDOL [Suspect]
     Route: 048
     Dates: start: 20110326, end: 20110327
  21. CLOZAPINE [Suspect]
     Route: 048
     Dates: start: 20110324
  22. DIAZEPAM [Concomitant]
     Route: 048
     Dates: start: 20110322, end: 20110328
  23. DIAZEPAM [Concomitant]
     Route: 048
     Dates: start: 20110402, end: 20110403
  24. AMITRIPTYLINE HCL [Concomitant]
     Route: 048
  25. GASTROZEPIN [Concomitant]
     Route: 048

REACTIONS (1)
  - PLEUROTHOTONUS [None]
